FAERS Safety Report 10018007 (Version 1)
Quarter: 2014Q1

REPORT INFORMATION
  Report Type: Spontaneous
  Country: US (occurrence: None)
  Receive Date: 20140313
  Receipt Date: 20140313
  Transmission Date: 20141002
  Serious: Yes (Other)
  Sender: FDA-Public Use
  Company Number: None

PATIENT
  Age: 65 Year
  Sex: Female
  Weight: 76.66 kg

DRUGS (1)
  1. DULERA (MOMETASONE FUROATE/FORMOTEROL, FUMARATE DIHYDRAT), MERCK + CO. INC. [Suspect]
     Indication: DYSPNOEA
     Dosage: PUFFS, BY MOUTH
     Dates: start: 201401, end: 201402

REACTIONS (3)
  - Abnormal dreams [None]
  - Nightmare [None]
  - Palpitations [None]
